FAERS Safety Report 11918891 (Version 2)
Quarter: 2016Q3

REPORT INFORMATION
  Report Type: Spontaneous
  Country: US (occurrence: US)
  Receive Date: 20160115
  Receipt Date: 20160907
  Transmission Date: 20161109
  Serious: Yes (Other)
  Sender: FDA-Public Use
  Company Number: US-JNJFOC-20151205111

PATIENT
  Age: 47 Year
  Sex: Male
  Weight: 80.74 kg

DRUGS (10)
  1. LEVAQUIN [Suspect]
     Active Substance: LEVOFLOXACIN
     Indication: PROSTATITIS
     Dosage: 28 DAYS
     Route: 048
     Dates: start: 20041021, end: 2004
  2. LEVAQUIN [Suspect]
     Active Substance: LEVOFLOXACIN
     Indication: UROSEPSIS
     Dosage: 28 DAYS
     Route: 048
     Dates: start: 20041021, end: 2004
  3. LEVAQUIN [Suspect]
     Active Substance: LEVOFLOXACIN
     Indication: UROSEPSIS
     Dosage: FOR 13 DAYS
     Route: 048
     Dates: start: 20040930, end: 2004
  4. LEVAQUIN [Suspect]
     Active Substance: LEVOFLOXACIN
     Indication: URINARY TRACT INFECTION
     Dosage: 28 DAYS
     Route: 048
     Dates: start: 20041021, end: 2004
  5. CIPROFLOXACIN. [Suspect]
     Active Substance: CIPROFLOXACIN
     Indication: UROSEPSIS
     Route: 065
     Dates: start: 20041227, end: 20041231
  6. LEVAQUIN [Suspect]
     Active Substance: LEVOFLOXACIN
     Indication: PROSTATITIS
     Dosage: FOR 13 DAYS
     Route: 048
     Dates: start: 20040930, end: 2004
  7. LEVAQUIN [Suspect]
     Active Substance: LEVOFLOXACIN
     Indication: UROSEPSIS
     Dosage: FOR 28 DAYS
     Route: 048
     Dates: start: 20041101, end: 2004
  8. LEVAQUIN [Suspect]
     Active Substance: LEVOFLOXACIN
     Indication: PROSTATITIS
     Dosage: FOR 28 DAYS
     Route: 048
     Dates: start: 20041101, end: 2004
  9. LEVAQUIN [Suspect]
     Active Substance: LEVOFLOXACIN
     Indication: URINARY TRACT INFECTION
     Dosage: FOR 13 DAYS
     Route: 048
     Dates: start: 20040930, end: 2004
  10. LEVAQUIN [Suspect]
     Active Substance: LEVOFLOXACIN
     Indication: URINARY TRACT INFECTION
     Dosage: FOR 28 DAYS
     Route: 048
     Dates: start: 20041101, end: 2004

REACTIONS (3)
  - Mental disorder [Not Recovered/Not Resolved]
  - Neuropathy peripheral [Not Recovered/Not Resolved]
  - Musculoskeletal pain [Not Recovered/Not Resolved]

NARRATIVE: CASE EVENT DATE: 200410
